FAERS Safety Report 24131473 (Version 3)
Quarter: 2024Q4

REPORT INFORMATION
  Report Type: Spontaneous
  Country: JP (occurrence: JP)
  Receive Date: 20240724
  Receipt Date: 20241016
  Transmission Date: 20250114
  Serious: Yes (Death, Hospitalization, Other)
  Sender: BAYER HEALTHCARE PHARMACEUTICALS INC.
  Company Number: JP-BAYER-2024A105544

PATIENT
  Age: 70 Year
  Sex: Male

DRUGS (4)
  1. KERENDIA [Suspect]
     Active Substance: FINERENONE
     Indication: Type 2 diabetes mellitus
     Dosage: DAILY DOSE 10 MG
     Dates: start: 20231212, end: 20240801
  2. KERENDIA [Suspect]
     Active Substance: FINERENONE
     Indication: Chronic kidney disease
  3. MYCOPHENOLATE MOFETIL [Suspect]
     Active Substance: MYCOPHENOLATE MOFETIL
     Indication: Microscopic polyangiitis
  4. PREDNISOLONE [Suspect]
     Active Substance: PREDNISOLONE
     Indication: Microscopic polyangiitis

REACTIONS (3)
  - COVID-19 pneumonia [Fatal]
  - Renal impairment [None]
  - Glomerular filtration rate decreased [Not Recovered/Not Resolved]

NARRATIVE: CASE EVENT DATE: 20240422
